FAERS Safety Report 8914474 (Version 2)
Quarter: 2012Q4

REPORT INFORMATION
  Report Type: 
  Country: BE (occurrence: FR)
  Receive Date: 20121116
  Receipt Date: 20121127
  Transmission Date: 20130627
  Serious: Yes (Other)
  Sender: FDA-Public Use
  Company Number: BE-AMGEN-FRASP2012073306

PATIENT
  Age: 59 Year
  Sex: Male

DRUGS (1)
  1. CINACALCET HCL [Suspect]
     Indication: HYPERPARATHYROIDISM SECONDARY
     Dosage: 60 mg, UNK
     Dates: start: 2012

REACTIONS (5)
  - Hyperkalaemia [Recovered/Resolved]
  - Monoparesis [Recovered/Resolved]
  - Electrocardiogram abnormal [Unknown]
  - Hypocalcaemia [Recovered/Resolved]
  - Paraesthesia oral [Recovered/Resolved]
